FAERS Safety Report 5335841-X (Version None)
Quarter: 2007Q2

REPORT INFORMATION
  Report Type: 
  Country: None (occurrence: None)
  Receive Date: 20070228
  Receipt Date: 20060531
  Transmission Date: 20071010
  Serious: No
  Sender: FDA-Public Use
  Company Number: 06P-163-0334747-00

PATIENT
  Age: 3 Day
  Sex: Female

DRUGS (3)
  1. DILAUDID [Suspect]
     Indication: DRUG EXPOSURE DURING PREGNANCY
  2. FENTANYL [Suspect]
     Indication: DRUG EXPOSURE DURING PREGNANCY
  3. OXYCOCET [Suspect]
     Indication: DRUG EXPOSURE DURING PREGNANCY

REACTIONS (3)
  - HYPERSOMNIA [None]
  - LETHARGY [None]
  - NAUSEA [None]
